FAERS Safety Report 5483452-8 (Version None)
Quarter: 2007Q4

REPORT INFORMATION
  Report Type: 
  Country: None (occurrence: None)
  Receive Date: 20071012
  Receipt Date: 20071003
  Transmission Date: 20080405
  Serious: Yes (Death)
  Sender: FDA-Public Use
  Company Number: US-JNJFOC-20070802601

PATIENT
  Sex: Female
  Weight: 58.97 kg

DRUGS (9)
  1. REMICADE [Suspect]
     Indication: RHEUMATOID ARTHRITIS
  2. PREDNISONE [Concomitant]
  3. PLAQUENIL [Concomitant]
  4. IMURAN [Concomitant]
  5. ACTONIL [Concomitant]
  6. SYNTHROID [Concomitant]
  7. CALCIUM/VIT D [Concomitant]
  8. VITAMIN E [Concomitant]
  9. ASCORBIC ACID [Concomitant]

REACTIONS (1)
  - COLON CANCER [None]
